FAERS Safety Report 7412591-7 (Version None)
Quarter: 2011Q2

REPORT INFORMATION
  Report Type: 
  Country: None (occurrence: None)
  Receive Date: 20110413
  Receipt Date: 20110407
  Transmission Date: 20111010
  Serious: Yes (Other)
  Sender: FDA-Public Use
  Company Number: US-ABBOTT-11P-163-0717599-00

PATIENT
  Sex: Female
  Weight: 61.29 kg

DRUGS (33)
  1. LORTAB [Concomitant]
     Indication: ROAD TRAFFIC ACCIDENT
     Dosage: 7/500MG
     Route: 048
  2. XANAX [Concomitant]
     Indication: ANXIETY
     Route: 048
  3. RITALIN [Concomitant]
     Indication: ATTENTION DEFICIT/HYPERACTIVITY DISORDER
     Route: 048
  4. BENTYL [Concomitant]
     Indication: IRRITABLE BOWEL SYNDROME
  5. BENTYL [Concomitant]
     Indication: IMPAIRED GASTRIC EMPTYING
  6. COLACE [Concomitant]
     Indication: CONSTIPATION
     Dosage: OTC-ALTERNATE W/SENNALAX; 3X/DAY AS NEEDED
     Route: 048
  7. SENNA LAX [Concomitant]
     Indication: CONSTIPATION
     Dosage: OTC-ALTERNATE W/COLACE; 3X/DAY AS NEEDED
     Route: 048
  8. TRAZODONE [Concomitant]
     Indication: INSOMNIA
     Dosage: AT HOUR OF SLEEP
     Route: 048
  9. ZANAFLEX [Concomitant]
  10. TOPAMAX [Concomitant]
     Indication: HEADACHE
     Route: 048
  11. REGLAN [Concomitant]
     Indication: GASTRIC DISORDER
     Route: 048
  12. LORTAB [Concomitant]
  13. ZOFRAN [Concomitant]
     Indication: NAUSEA
     Route: 048
  14. WELLBUTRIN XL [Concomitant]
     Indication: DEPRESSION
     Route: 048
  15. GAS X [Concomitant]
     Indication: IMPAIRED GASTRIC EMPTYING
     Route: 048
  16. PHENERGAN HCL [Concomitant]
     Indication: RESTLESSNESS
  17. EFFEXOR [Suspect]
     Route: 048
     Dates: start: 20110403, end: 20110405
  18. CLONOPIN [Concomitant]
     Indication: INSOMNIA
  19. XANAX [Concomitant]
     Indication: DEPRESSION
  20. FIORINAL W/CODEINE [Concomitant]
     Indication: MIGRAINE
     Route: 048
  21. BENTYL [Concomitant]
     Indication: ABDOMINAL PAIN UPPER
     Route: 048
  22. MYLANTA [Concomitant]
     Indication: DYSPEPSIA
     Route: 048
  23. CLONOPIN [Concomitant]
     Indication: ANXIETY
     Dosage: AT HOUR OF SLEEP
     Route: 048
  24. PHENERGAN HCL [Concomitant]
     Indication: NAUSEA
     Route: 048
  25. EFFEXOR [Suspect]
     Indication: PRODUCT USED FOR UNKNOWN INDICATION
     Route: 048
     Dates: start: 20110301, end: 20110401
  26. INDERAL [Concomitant]
     Indication: HYPERTENSION
  27. ZANAFLEX [Concomitant]
     Indication: INJURY
     Route: 048
  28. CHLORAL HYDRATE [Concomitant]
     Indication: INSOMNIA
     Route: 048
  29. VITAMIN B-12 [Concomitant]
     Indication: ANAEMIA
     Route: 058
  30. PHENERGAN HCL [Concomitant]
     Indication: INSOMNIA
  31. CYSTOLIC [Concomitant]
     Indication: HYPERTENSION
  32. HUMIRA [Suspect]
     Indication: CROHN'S DISEASE
     Route: 058
     Dates: start: 20090301
  33. INDERAL [Concomitant]
     Indication: HEADACHE
     Route: 048

REACTIONS (12)
  - NASOPHARYNGITIS [None]
  - DYSARTHRIA [None]
  - BLOOD POTASSIUM DECREASED [None]
  - CONVULSION [None]
  - CHEST PAIN [None]
  - PYREXIA [None]
  - FATIGUE [None]
  - TREMOR [None]
  - HEART RATE IRREGULAR [None]
  - HYPERTENSION [None]
  - MALAISE [None]
  - TOXICITY TO VARIOUS AGENTS [None]
